FAERS Safety Report 17342476 (Version 1)
Quarter: 2020Q1

REPORT INFORMATION
  Report Type: Spontaneous
  Country: US (occurrence: US)
  Receive Date: 20200129
  Receipt Date: 20200129
  Transmission Date: 20200409
  Serious: No
  Sender: FDA-Public Use
  Company Number: US-ALLERGAN-1926328US

PATIENT
  Age: 77 Year
  Sex: Female

DRUGS (1)
  1. BOTOX COSMETIC [Suspect]
     Active Substance: ONABOTULINUMTOXINA
     Indication: SKIN WRINKLING
     Dosage: UNK UNK, SINGLE
     Dates: start: 20190519, end: 20190519

REACTIONS (12)
  - Malaise [Not Recovered/Not Resolved]
  - Pneumonia [Unknown]
  - Influenza [Recovered/Resolved]
  - Weight decreased [Recovered/Resolved]
  - Needle issue [Unknown]
  - Blood test abnormal [Recovered/Resolved]
  - Taste disorder [Recovered/Resolved]
  - Poisoning [Not Recovered/Not Resolved]
  - Nausea [Recovered/Resolved]
  - Feeding disorder [Recovered/Resolved]
  - Cough [Not Recovered/Not Resolved]
  - Pyrexia [Recovered/Resolved]

NARRATIVE: CASE EVENT DATE: 2019
